FAERS Safety Report 26094664 (Version 1)
Quarter: 2025Q4

REPORT INFORMATION
  Report Type: Spontaneous
  Country: US (occurrence: US)
  Receive Date: 20251126
  Receipt Date: 20251126
  Transmission Date: 20260118
  Serious: Yes (Other)
  Sender: SERVIER
  Company Number: US-SERVIER-S25016897

PATIENT

DRUGS (1)
  1. VORANIGO [Suspect]
     Active Substance: VORASIDENIB
     Indication: Brain neoplasm
     Dosage: UNK
     Route: 048

REACTIONS (2)
  - Drug-induced liver injury [Unknown]
  - Autoimmune hepatitis [Unknown]
